FAERS Safety Report 12752596 (Version 2)
Quarter: 2016Q3

REPORT INFORMATION
  Report Type: Report from Study
  Country: CA (occurrence: CA)
  Receive Date: 20160916
  Receipt Date: 20160923
  Transmission Date: 20161109
  Serious: Yes (Other)
  Sender: FDA-Public Use
  Company Number: CA-BIOGEN-2016BI00290373

PATIENT
  Age: 32 Year
  Sex: Male

DRUGS (1)
  1. FAMPYRA [Suspect]
     Active Substance: DALFAMPRIDINE
     Indication: GAIT DISTURBANCE
     Route: 048
     Dates: start: 20160718

REACTIONS (6)
  - Peripheral swelling [Not Recovered/Not Resolved]
  - Pain [Not Recovered/Not Resolved]
  - Induration [Not Recovered/Not Resolved]
  - Discomfort [Unknown]
  - Sensory loss [Not Recovered/Not Resolved]
  - Phlebitis deep [Not Recovered/Not Resolved]

NARRATIVE: CASE EVENT DATE: 20160908
